FAERS Safety Report 5956945-4 (Version None)
Quarter: 2008Q4

REPORT INFORMATION
  Report Type: 
  Country: None (occurrence: None)
  Receive Date: 20081118
  Receipt Date: 20081106
  Transmission Date: 20090506
  Serious: Yes (Other)
  Sender: FDA-Public Use
  Company Number: US-PFIZER INC-2008010046

PATIENT
  Sex: Female
  Weight: 74 kg

DRUGS (6)
  1. DILANTIN [Suspect]
     Indication: CONVULSION
     Dates: start: 19650101
  2. TOPAMAX [Suspect]
     Dates: start: 20000101, end: 20010101
  3. ALL OTHER THERAPEUTIC PRODUCTS [Suspect]
  4. KEPPRA [Concomitant]
  5. CENTRUM [Concomitant]
  6. FERROUS SULFATE TAB [Concomitant]

REACTIONS (8)
  - ADVERSE EVENT [None]
  - CEREBRAL LOBOTOMY [None]
  - CONVULSION [None]
  - DIZZINESS [None]
  - FATIGUE [None]
  - MALAISE [None]
  - SYNCOPE [None]
  - TONGUE BLISTERING [None]
